FAERS Safety Report 4284349-1 (Version None)
Quarter: 2004Q1

REPORT INFORMATION
  Report Type: 
  Country: None (occurrence: None)
  Receive Date: 20040130
  Receipt Date: 20040108
  Transmission Date: 20041129
  Serious: Yes (Hospitalization, Disabling)
  Sender: FDA-Public Use
  Company Number: USA040156099

PATIENT
  Age: 46 Year
  Sex: Female
  Weight: 65 kg

DRUGS (6)
  1. HUMULIN 70/30 [Suspect]
     Indication: DIABETES MELLITUS
     Dates: start: 19990101, end: 20000101
  2. HUMALOG [Suspect]
     Indication: DIABETES MELLITUS
     Dates: start: 20000101
  3. HUMULIN N [Suspect]
     Indication: DIABETES MELLITUS
     Dates: end: 19990101
  4. HUMULIN R [Suspect]
     Indication: DIABETES MELLITUS
     Dates: end: 19990101
  5. INSULIN [Suspect]
     Indication: DIABETES MELLITUS
     Dates: start: 19810101
  6. LANTUS (INSLUIN GLARGINE) [Concomitant]

REACTIONS (7)
  - BLOOD GLUCOSE INCREASED [None]
  - DIABETES MELLITUS INSULIN-DEPENDENT [None]
  - DIABETIC KETOACIDOSIS [None]
  - NERVE INJURY [None]
  - PHARYNGOLARYNGEAL PAIN [None]
  - RASH [None]
  - SWELLING [None]
